FAERS Safety Report 24755276 (Version 1)
Quarter: 2024Q4

REPORT INFORMATION
  Report Type: Spontaneous
  Country: DE (occurrence: DE)
  Receive Date: 20241219
  Receipt Date: 20241219
  Transmission Date: 20250115
  Serious: Yes (Other)
  Sender: ELI LILLY AND COMPANY
  Company Number: DE-ELI_LILLY_AND_COMPANY-DE202412009790

PATIENT
  Sex: Female

DRUGS (1)
  1. MOUNJARO [Suspect]
     Active Substance: TIRZEPATIDE
     Indication: Product used for unknown indication
     Dosage: UNK, UNK,  UNKNOWN
     Route: 065
     Dates: start: 202409

REACTIONS (2)
  - Aneurysm [Unknown]
  - Retinal haemorrhage [Unknown]

NARRATIVE: CASE EVENT DATE: 20241201
